FAERS Safety Report 8739513 (Version 2)
Quarter: 2012Q4

REPORT INFORMATION
  Report Type: 
  Country: US (occurrence: US)
  Receive Date: 20120823
  Receipt Date: 20120924
  Transmission Date: 20130627
  Serious: Yes (Life-Threatening, Other)
  Sender: FDA-Public Use
  Company Number: US-ASTRAZENECA-2012SE57728

PATIENT
  Age: 35 Month
  Sex: Female

DRUGS (4)
  1. NEXIUM [Suspect]
     Route: 048
  2. CRESTOR [Suspect]
     Route: 048
  3. TRILIPIX [Suspect]
  4. LIPITOR [Concomitant]

REACTIONS (7)
  - Blood triglycerides increased [Unknown]
  - Pharyngeal oedema [Unknown]
  - Apparent death [Unknown]
  - Throat tightness [Unknown]
  - Back pain [Unknown]
  - Pain in extremity [Unknown]
  - Drug dose omission [Unknown]
